FAERS Safety Report 19754860 (Version 1)
Quarter: 2021Q3

REPORT INFORMATION
  Report Type: Spontaneous
  Country: US (occurrence: US)
  Receive Date: 20210824
  Receipt Date: 20210824
  Transmission Date: 20211014
  Serious: Yes (Hospitalization)
  Sender: FDA-Public Use
  Company Number: None

PATIENT
  Age: 85 Year
  Sex: Male
  Weight: 41.35 kg

DRUGS (1)
  1. SACUBITRIL/VALSARTAN (SACUBITRIL 24MG/VALSARTAN 26MG TAB) [Suspect]
     Active Substance: SACUBITRIL\VALSARTAN
     Indication: CARDIAC FAILURE CONGESTIVE
     Dosage: ?          OTHER DOSE:24?26 MG;?
     Route: 048
     Dates: start: 20210601, end: 20210623

REACTIONS (4)
  - Hypotension [None]
  - Cardiac failure acute [None]
  - Presyncope [None]
  - Cardiac failure congestive [None]

NARRATIVE: CASE EVENT DATE: 20210622
